FAERS Safety Report 10585555 (Version 1)
Quarter: 2014Q4

REPORT INFORMATION
  Report Type: Spontaneous
  Country: TR (occurrence: None)
  Receive Date: 20141113
  Receipt Date: 20141113
  Transmission Date: 20150529
  Serious: Yes (Hospitalization)
  Sender: FDA-Public Use
  Company Number: TR-ZYDUS-005313

PATIENT
  Age: 2 Year
  Sex: Male

DRUGS (4)
  1. FLUMAZENIL (FLUMAZENIL) [Concomitant]
  2. ACICLOVIR (ACICLOVIR) [Suspect]
     Active Substance: ACYCLOVIR
     Indication: HERPES SIMPLEX
     Dosage: (NOT OTHERWISE SPECIFIED)
     Route: 042
  3. PHENYTOIN. [Concomitant]
     Active Substance: PHENYTOIN
  4. BENZODIAZEPINE [Concomitant]
     Active Substance: BENZODIAZEPINE

REACTIONS (1)
  - Hypertension [None]
